FAERS Safety Report 14064766 (Version 1)
Quarter: 2017Q4

REPORT INFORMATION
  Report Type: Report from Study
  Country: US (occurrence: US)
  Receive Date: 20171009
  Receipt Date: 20171009
  Transmission Date: 20180321
  Serious: No
  Sender: FDA-Public Use
  Company Number: US-AMGEN-USASL2017067449

PATIENT
  Age: 98 Year
  Sex: Female

DRUGS (4)
  1. PROLIA [Suspect]
     Active Substance: DENOSUMAB
     Indication: OSTEOPOROSIS
     Dosage: 60 MG, Q6MO
     Route: 058
  2. PROLIA [Suspect]
     Active Substance: DENOSUMAB
     Indication: BODY HEIGHT DECREASED
  3. PROLIA [Suspect]
     Active Substance: DENOSUMAB
     Indication: KYPHOSIS
  4. CALCIUM CITRATE WITH VITAMIN D [Concomitant]
     Active Substance: CALCIUM CITRATE\VITAMIN D
     Dosage: 315MG/250IU, QD

REACTIONS (5)
  - Blood calcium decreased [Unknown]
  - Fall [Unknown]
  - Off label use [Unknown]
  - Vitamin D decreased [Unknown]
  - Blood urea increased [Unknown]
